FAERS Safety Report 9377803 (Version 1)
Quarter: 2013Q3

REPORT INFORMATION
  Report Type: Spontaneous
  Country: US (occurrence: US)
  Receive Date: 20130701
  Receipt Date: 20130701
  Transmission Date: 20140515
  Serious: No
  Sender: FDA-Public Use
  Company Number: US-GLAXOSMITHKLINE-A1005717A

PATIENT
  Age: 52 Year
  Sex: Female

DRUGS (9)
  1. SUMATRIPTAN SUCCINATE [Suspect]
     Indication: MIGRAINE
     Dosage: 1TAB AS REQUIRED
     Route: 048
     Dates: start: 20120830
  2. IMITREX [Suspect]
     Indication: MIGRAINE
     Route: 048
     Dates: start: 2008
  3. ALBUTEROL INHALER [Concomitant]
  4. ALPRAZOLAM [Concomitant]
  5. FLEXERIL [Concomitant]
  6. IBUPROFEN [Concomitant]
  7. METHOCARBAMOL [Concomitant]
  8. LEVOTHYROXINE [Concomitant]
  9. BROMELAIN PINEAPPLE EXTRACT [Concomitant]

REACTIONS (4)
  - Heart rate increased [Recovering/Resolving]
  - Vomiting [Unknown]
  - Fatigue [Unknown]
  - Drug ineffective [Unknown]
